FAERS Safety Report 4932737-X (Version None)
Quarter: 2006Q1

REPORT INFORMATION
  Report Type: 
  Country: None (occurrence: None)
  Receive Date: 20060301
  Receipt Date: 20060301
  Transmission Date: 20060701
  Serious: Yes (Other)
  Sender: FDA-Public Use
  Company Number: None

PATIENT
  Age: 52 Year
  Sex: Female
  Weight: 72.1219 kg

DRUGS (5)
  1. LEVAQUIN [Suspect]
     Indication: INFECTION
     Dosage: 500 MG   TWICE A DAY 14 DAY  PO
     Route: 048
     Dates: start: 20060217, end: 20060217
  2. LEVAQUIN [Suspect]
     Indication: LYMPHADENOPATHY
     Dosage: 500 MG   TWICE A DAY 14 DAY  PO
     Route: 048
     Dates: start: 20060217, end: 20060217
  3. LEVAQUIN [Suspect]
     Indication: INFECTION
     Dosage: 500 MG   TWICE A DAY 14 DAY  PO
     Route: 048
     Dates: start: 20060226, end: 20060226
  4. LEVAQUIN [Suspect]
     Indication: LYMPHADENOPATHY
     Dosage: 500 MG   TWICE A DAY 14 DAY  PO
     Route: 048
     Dates: start: 20060226, end: 20060226
  5. LEVAQUIN [Concomitant]

REACTIONS (6)
  - ARTHRALGIA [None]
  - DIFFICULTY IN WALKING [None]
  - FEELING ABNORMAL [None]
  - PAIN [None]
  - PAIN IN EXTREMITY [None]
  - SINUSITIS [None]
